FAERS Safety Report 19993623 (Version 1)
Quarter: 2021Q4

REPORT INFORMATION
  Report Type: Spontaneous
  Country: ES (occurrence: ES)
  Receive Date: 20211025
  Receipt Date: 20211025
  Transmission Date: 20220303
  Serious: Yes (Life-Threatening, Hospitalization)
  Sender: FDA-Public Use
  Company Number: None

PATIENT
  Sex: Female
  Weight: 57 kg

DRUGS (1)
  1. CEFTAROLINE FOSAMIL [Suspect]
     Active Substance: CEFTAROLINE FOSAMIL
     Indication: Pneumonia
     Dosage: 600 MG, Q8HR
     Route: 042
     Dates: start: 20210912, end: 20211004

REACTIONS (2)
  - Pancytopenia [Recovering/Resolving]
  - Toxic skin eruption [Recovering/Resolving]

NARRATIVE: CASE EVENT DATE: 20210930
